FAERS Safety Report 7737512-9 (Version None)
Quarter: 2011Q3

REPORT INFORMATION
  Report Type: 
  Country: None (occurrence: None)
  Receive Date: 20110908
  Receipt Date: 20110906
  Transmission Date: 20111222
  Serious: Yes (Hospitalization)
  Sender: FDA-Public Use
  Company Number: RO-ROXANE LABORATORIES, INC.-2011-RO-01217RO

PATIENT
  Age: 62 Year
  Sex: Female

DRUGS (3)
  1. PERINDOPRIL ERBUMINE [Suspect]
     Dosage: 8 MG
  2. KETOPROFEN [Suspect]
     Dosage: 100 MG
  3. SILYBINUM [Suspect]
     Dosage: 450 MG

REACTIONS (2)
  - URINARY TRACT INFECTION [None]
  - RENAL FAILURE ACUTE [None]
